FAERS Safety Report 12818508 (Version 1)
Quarter: 2016Q4

REPORT INFORMATION
  Report Type: Spontaneous
  Country: US (occurrence: US)
  Receive Date: 20161005
  Receipt Date: 20161005
  Transmission Date: 20170207
  Serious: Yes (Other)
  Sender: FDA-Public Use
  Company Number: None

PATIENT
  Age: 44 Year
  Sex: Female

DRUGS (5)
  1. BACLOFEN. [Concomitant]
     Active Substance: BACLOFEN
  2. RITUXAN [Concomitant]
     Active Substance: RITUXIMAB
  3. AMPYRA [Suspect]
     Active Substance: DALFAMPRIDINE
     Indication: MULTIPLE SCLEROSIS
     Route: 048
     Dates: start: 201503
  4. IBUPROFEN. [Concomitant]
     Active Substance: IBUPROFEN
  5. METHENAMINE [Concomitant]
     Active Substance: METHENAMINE

REACTIONS (1)
  - Breast cyst [None]

NARRATIVE: CASE EVENT DATE: 20160927
